FAERS Safety Report 23261740 (Version 1)
Quarter: 2023Q4

REPORT INFORMATION
  Report Type: Spontaneous
  Country: SE (occurrence: SE)
  Receive Date: 20231205
  Receipt Date: 20231205
  Transmission Date: 20240109
  Serious: Yes (Other)
  Sender: FDA-Public Use
  Company Number: None

PATIENT
  Age: 57 Year
  Sex: Male

DRUGS (9)
  1. ALLOPURINOL [Suspect]
     Active Substance: ALLOPURINOL
     Indication: Gout
     Dosage: STRENGTH: 100 MG
     Dates: start: 20231004, end: 20231102
  2. ACETAMINOPHEN [Concomitant]
     Active Substance: ACETAMINOPHEN
     Dosage: STRENGTH: 1000 MG
  3. NORSPAN [Concomitant]
     Active Substance: BUPRENORPHINE
     Dosage: STRENGTH: 20 MG
  4. OMEPRAZOLE [Concomitant]
     Active Substance: OMEPRAZOLE
     Dosage: STRENGTH: 20 MG
  5. LORATADINE [Concomitant]
     Active Substance: LORATADINE
     Dosage: STRENGTH:10 MG
  6. SEMAGLUTIDE [Concomitant]
     Active Substance: SEMAGLUTIDE
     Dosage: STRENGTH: 0.25 MG, SOLUTION FOR INJECTION IN PRE-FILLED PEN
  7. ELIQUIS [Concomitant]
     Active Substance: APIXABAN
     Dosage: 1X2
  8. CAMPRAL [Concomitant]
     Active Substance: ACAMPROSATE CALCIUM
     Dosage: STRENGTH: 333 MG
  9. LIVOSTIN [Concomitant]
     Active Substance: LEVOCABASTINE HYDROCHLORIDE
     Dosage: STRENGTH: 54.3 MCG, 50 MCG

REACTIONS (1)
  - Dyspnoea exertional [Recovered/Resolved]

NARRATIVE: CASE EVENT DATE: 20231014
